FAERS Safety Report 25037120 (Version 2)
Quarter: 2025Q1

REPORT INFORMATION
  Report Type: Report from Study
  Country: EG (occurrence: EG)
  Receive Date: 20250304
  Receipt Date: 20250307
  Transmission Date: 20250409
  Serious: Yes (Other)
  Sender: NOVARTIS
  Company Number: EG-002147023-NVSC2025EG034157

PATIENT
  Sex: Female
  Weight: 98 kg

DRUGS (4)
  1. KISQALI [Suspect]
     Active Substance: RIBOCICLIB
     Indication: Breast cancer metastatic
     Dosage: 3 DOSAGE FORM, QD, (200 MG, 3 TABLETS ONCE DAILY FOR 21 DAYS AND ONE WEEK OFF)
     Route: 048
     Dates: start: 202408, end: 202501
  2. KISQALI [Suspect]
     Active Substance: RIBOCICLIB
     Dosage: 2 DOSAGE FORM, QD, 3 DOSAGE FORM, QD, (200 MG, 2 TABLETS ONCE DAILY FOR 21 DAYS AND ONE WEEK OFF)
     Route: 048
  3. FEMARA [Suspect]
     Active Substance: LETROZOLE
     Indication: Neoplasm malignant
     Dosage: 2.5 MG, QD, ONE TAB ONCE DAILY
     Route: 048
     Dates: start: 202408
  4. GOSERELIN [Concomitant]
     Active Substance: GOSERELIN
     Indication: Ovarian hyperstimulation syndrome
     Dosage: 1 DOSAGE FORM, Q3MO, (ONE INJ EVERY 3 MONTHS)
     Route: 065
     Dates: start: 202408

REACTIONS (5)
  - Fatigue [Recovered/Resolved]
  - Skin discolouration [Unknown]
  - Liver function test increased [Recovered/Resolved]
  - Product use in unapproved indication [Unknown]
  - Off label use [Unknown]

NARRATIVE: CASE EVENT DATE: 20240101
